FAERS Safety Report 5036581-7 (Version None)
Quarter: 2006Q2

REPORT INFORMATION
  Report Type: 
  Country: None (occurrence: None)
  Receive Date: 20060531
  Receipt Date: 20060419
  Transmission Date: 20061013
  Serious: No
  Sender: FDA-Public Use
  Company Number: PHEH2006US03852

PATIENT
  Age: 50 Year
  Sex: Male
  Weight: 84.4 kg

DRUGS (5)
  1. EXJADE [Suspect]
     Indication: BLOOD IRON INCREASED
     Dosage: 1500 MG, QD
     Dates: start: 20060206, end: 20060228
  2. SYNTHROID [Concomitant]
  3. ACIPHEX [Concomitant]
  4. COUMADIN [Concomitant]
  5. INSULIN [Concomitant]

REACTIONS (7)
  - ABDOMINAL PAIN [None]
  - DIARRHOEA [None]
  - NAUSEA [None]
  - PARAESTHESIA [None]
  - RASH [None]
  - SWELLING [None]
  - VOMITING [None]
